FAERS Safety Report 7215477-6 (Version None)
Quarter: 2011Q1

REPORT INFORMATION
  Report Type: 
  Country: None (occurrence: None)
  Receive Date: 20110107
  Receipt Date: 20101221
  Transmission Date: 20110831
  Serious: Yes (Other)
  Sender: FDA-Public Use
  Company Number: A0862304A

PATIENT
  Sex: Male

DRUGS (10)
  1. LISINOPRIL [Concomitant]
  2. ASPIRIN [Concomitant]
  3. AVANDIA [Suspect]
     Indication: DIABETES MELLITUS
     Route: 048
  4. FUROSEMID [Concomitant]
  5. GLUCOPHAGE [Concomitant]
  6. GLUCOTROL [Concomitant]
  7. LIPITOR [Concomitant]
  8. LASIX [Concomitant]
  9. METFORMIN [Concomitant]
  10. ACIPHEX [Concomitant]

REACTIONS (6)
  - LIVER INJURY [None]
  - HEART INJURY [None]
  - FLUID OVERLOAD [None]
  - CARDIAC ARREST [None]
  - FLUID RETENTION [None]
  - CEREBROVASCULAR ACCIDENT [None]
